FAERS Safety Report 23797458 (Version 1)
Quarter: 2024Q2

REPORT INFORMATION
  Report Type: Other
  Country: US (occurrence: US)
  Receive Date: 20240430
  Receipt Date: 20240430
  Transmission Date: 20240716
  Serious: Yes (Life-Threatening, Hospitalization, Other)
  Sender: FDA-Public Use
  Company Number: US-DEXPHARM-2024-1097

PATIENT
  Age: 49 Year
  Sex: Female

DRUGS (2)
  1. PANTOPRAZOLE [Interacting]
     Active Substance: PANTOPRAZOLE
  2. SUCRALFATE [Interacting]
     Active Substance: SUCRALFATE

REACTIONS (3)
  - Wernicke^s encephalopathy [Recovered/Resolved]
  - Vitamin B1 deficiency [Recovered/Resolved]
  - Drug interaction [Recovered/Resolved]
